FAERS Safety Report 17746658 (Version 1)
Quarter: 2020Q2

REPORT INFORMATION
  Report Type: Spontaneous
  Country: FR (occurrence: FR)
  Receive Date: 20200505
  Receipt Date: 20200505
  Transmission Date: 20200714
  Serious: Yes (Other)
  Sender: FDA-Public Use
  Company Number: NVSC2020FR121924

PATIENT
  Sex: Female

DRUGS (12)
  1. VINCRISTINE [Suspect]
     Active Substance: VINCRISTINE
     Indication: LANGERHANS^ CELL HISTIOCYTOSIS
  2. CYTARABINE. [Suspect]
     Active Substance: CYTARABINE
     Indication: BRAF GENE MUTATION
  3. VINBLASTINE [Suspect]
     Active Substance: VINBLASTINE
     Indication: BRAF GENE MUTATION
     Dosage: UNK (RECEIVED TWO CYCLES)
     Route: 065
  4. VEMURAFENIB. [Suspect]
     Active Substance: VEMURAFENIB
     Indication: BRAF GENE MUTATION
  5. PREDNISOLONE. [Suspect]
     Active Substance: PREDNISOLONE
     Indication: LANGERHANS^ CELL HISTIOCYTOSIS
     Dosage: UNK UNK, QD (RECEIVED TWO CYCLES)
     Route: 065
  6. VINBLASTINE [Suspect]
     Active Substance: VINBLASTINE
     Indication: LANGERHANS^ CELL HISTIOCYTOSIS
  7. CYTARABINE. [Suspect]
     Active Substance: CYTARABINE
     Indication: LANGERHANS^ CELL HISTIOCYTOSIS
     Dosage: UNK
     Route: 065
  8. VINCRISTINE [Suspect]
     Active Substance: VINCRISTINE
     Indication: BRAF GENE MUTATION
     Dosage: UNK
     Route: 065
  9. 6-MERCAPTOPURINE MONOHYDRATE [Suspect]
     Active Substance: MERCAPTOPURINE
     Indication: LANGERHANS^ CELL HISTIOCYTOSIS
     Dosage: UNK (RECEIVED TWO CYCLES)
     Route: 065
  10. PREDNISOLONE. [Suspect]
     Active Substance: PREDNISOLONE
     Indication: BRAF GENE MUTATION
  11. VEMURAFENIB. [Suspect]
     Active Substance: VEMURAFENIB
     Indication: LANGERHANS^ CELL HISTIOCYTOSIS
     Dosage: 20 MG/KG, QD
     Route: 048
  12. 6-MERCAPTOPURINE MONOHYDRATE [Suspect]
     Active Substance: MERCAPTOPURINE
     Indication: BRAF GENE MUTATION

REACTIONS (2)
  - Treatment failure [Unknown]
  - Off label use [Unknown]
